FAERS Safety Report 8883733 (Version 1)
Quarter: 2012Q4

REPORT INFORMATION
  Report Type: Report from Study
  Country: IT (occurrence: IT)
  Receive Date: 20121102
  Receipt Date: 20121102
  Transmission Date: 20130627
  Serious: Yes (Hospitalization)
  Sender: FDA-Public Use
  Company Number: IT-ASTRAZENECA-2010SE01816

PATIENT
  Sex: Male
  Weight: 72 kg

DRUGS (5)
  1. ZD6474 [Suspect]
     Indication: BILIARY NEOPLASM
     Route: 048
     Dates: start: 20091201, end: 20100111
  2. GEMCITABINE [Suspect]
     Indication: BILIARY NEOPLASM
     Route: 042
     Dates: start: 20091201, end: 20091201
  3. GEMCITABINE [Suspect]
     Indication: BILIARY NEOPLASM
     Route: 042
     Dates: start: 20091208, end: 20091208
  4. GEMCITABINE [Suspect]
     Indication: BILIARY NEOPLASM
     Route: 042
     Dates: start: 20091221, end: 20091221
  5. GEMCITABINE [Suspect]
     Indication: BILIARY NEOPLASM
     Route: 042
     Dates: start: 20091228, end: 20091228

REACTIONS (3)
  - Electrocardiogram ST segment abnormal [Recovered/Resolved]
  - Pleural effusion [Recovered/Resolved]
  - Dyspnoea [Recovered/Resolved]
